FAERS Safety Report 18793959 (Version 1)
Quarter: 2021Q1

REPORT INFORMATION
  Report Type: Spontaneous
  Country: US (occurrence: US)
  Receive Date: 20210127
  Receipt Date: 20210127
  Transmission Date: 20210419
  Serious: No
  Sender: FDA-Public Use
  Company Number: US-SA-2021SA015569

PATIENT
  Age: 34 Year
  Sex: Female

DRUGS (2)
  1. UNISOM SLEEPTABS [Suspect]
     Active Substance: DOXYLAMINE SUCCINATE
     Indication: INSOMNIA
     Dosage: UNK UNK, PRN
     Route: 048
     Dates: start: 20190101
  2. UNISOM SLEEPTABS [Suspect]
     Active Substance: DOXYLAMINE SUCCINATE
     Indication: INSOMNIA

REACTIONS (2)
  - Exposure during pregnancy [Unknown]
  - Wrong product administered [Unknown]

NARRATIVE: CASE EVENT DATE: 20190101
